FAERS Safety Report 19418004 (Version 1)
Quarter: 2021Q2

REPORT INFORMATION
  Report Type: Spontaneous
  Country: CA (occurrence: CA)
  Receive Date: 20210615
  Receipt Date: 20210615
  Transmission Date: 20210717
  Serious: Yes (Other)
  Sender: FDA-Public Use
  Company Number: CA-JNJFOC-20210625121

PATIENT
  Age: 30 Year
  Sex: Female
  Weight: 70 kg

DRUGS (5)
  1. SYNTHROID [Concomitant]
     Active Substance: LEVOTHYROXINE SODIUM
  2. VENLAFAXINE HYDROCHLORIDE. [Concomitant]
     Active Substance: VENLAFAXINE HYDROCHLORIDE
  3. LEUCOVORIN [FOLINIC ACID] [Concomitant]
     Active Substance: LEUCOVORIN
  4. INFLIXIMAB, RECOMBINANT [Suspect]
     Active Substance: INFLIXIMAB
     Indication: ANKYLOSING SPONDYLITIS
     Route: 042
  5. METHOTREXATE. [Concomitant]
     Active Substance: METHOTREXATE
     Route: 065

REACTIONS (8)
  - Off label use [Recovered/Resolved]
  - COVID-19 [Recovered/Resolved]
  - Fall [Recovered/Resolved]
  - Fracture [Recovered/Resolved]
  - Weight decreased [Recovered/Resolved]
  - Intentional product use issue [Recovered/Resolved]
  - Weight increased [Recovered/Resolved]
  - Product use issue [Recovered/Resolved]
